FAERS Safety Report 14742367 (Version 2)
Quarter: 2018Q2

REPORT INFORMATION
  Report Type: Spontaneous
  Country: US (occurrence: US)
  Receive Date: 20180410
  Receipt Date: 20180413
  Transmission Date: 20180711
  Serious: Yes (Other)
  Sender: FDA-Public Use
  Company Number: US-AMGEN-USASP2018046348

PATIENT
  Age: 76 Year
  Sex: Female

DRUGS (2)
  1. ENBREL [Suspect]
     Active Substance: ETANERCEPT
     Dosage: UNK UNK, QWK
     Route: 065
  2. ENBREL [Suspect]
     Active Substance: ETANERCEPT
     Indication: PRODUCT USED FOR UNKNOWN INDICATION
     Dosage: UNK UNK, QWK
     Route: 065

REACTIONS (7)
  - Cough [Unknown]
  - Nasopharyngitis [Unknown]
  - Cataract [Unknown]
  - Colonoscopy [Unknown]
  - Product storage error [Unknown]
  - Drug dose omission [Unknown]
  - Aphasia [Unknown]

NARRATIVE: CASE EVENT DATE: 2013
